FAERS Safety Report 20681157 (Version 1)
Quarter: 2022Q2

REPORT INFORMATION
  Report Type: Spontaneous
  Country: JP (occurrence: JP)
  Receive Date: 20220406
  Receipt Date: 20220406
  Transmission Date: 20220721
  Serious: Yes (Hospitalization, Other)
  Sender: FDA-Public Use
  Company Number: JP-Teva Takeda Yakuhin-2022-JP-001443J

PATIENT
  Sex: Male

DRUGS (8)
  1. CERCINE [Suspect]
     Active Substance: DIAZEPAM
     Indication: Product used for unknown indication
     Dosage: 6 MILLIGRAM DAILY; 2MG. CERCINE TABLETS
     Route: 048
  2. CERCINE [Suspect]
     Active Substance: DIAZEPAM
     Dosage: 5 MILLIGRAM DAILY;
     Route: 048
     Dates: start: 202101
  3. CERCINE [Suspect]
     Active Substance: DIAZEPAM
     Dosage: 4 MILLIGRAM DAILY;
     Route: 048
     Dates: start: 2021
  4. CERCINE [Suspect]
     Active Substance: DIAZEPAM
     Route: 048
     Dates: start: 202106
  5. ALPRAZOLAM [Suspect]
     Active Substance: ALPRAZOLAM
     Indication: Product used for unknown indication
     Dosage: 1.2 MILLIGRAM DAILY; CONSTAN 0.4MG.TABLETS
     Route: 048
  6. ALPRAZOLAM [Suspect]
     Active Substance: ALPRAZOLAM
     Route: 048
     Dates: start: 2021
  7. ALPRAZOLAM [Suspect]
     Active Substance: ALPRAZOLAM
     Dosage: .4 MILLIGRAM DAILY;
     Route: 048
     Dates: start: 202106
  8. ALPRAZOLAM [Suspect]
     Active Substance: ALPRAZOLAM
     Route: 048
     Dates: start: 20210628

REACTIONS (4)
  - Volvulus [Unknown]
  - Seizure [Unknown]
  - Dyskinesia [Unknown]
  - Intentional product use issue [Unknown]

NARRATIVE: CASE EVENT DATE: 20210601
